FAERS Safety Report 6275406-9 (Version None)
Quarter: 2009Q3

REPORT INFORMATION
  Report Type: 
  Country: None (occurrence: None)
  Receive Date: 20090721
  Receipt Date: 20090716
  Transmission Date: 20100115
  Serious: Yes (Hospitalization)
  Sender: FDA-Public Use
  Company Number: DE-WYE-H09546209

PATIENT
  Sex: Female

DRUGS (4)
  1. RAPAMUNE [Suspect]
     Indication: PROPHYLAXIS AGAINST GRAFT VERSUS HOST DISEASE
     Dosage: DOSAGE ADJUSTED ACCORDING TO BLOOD LEVEL OF SIROLIMUS
     Route: 048
     Dates: start: 20060918, end: 20061106
  2. MYCOPHENOLATE MOFETIL [Suspect]
     Indication: PROPHYLAXIS AGAINST TRANSPLANT REJECTION
     Dosage: 1000 MG INITIAL DOSE GIVEN 6-12 HOURS AFTER TRANSPLANTATION
     Route: 042
  3. MYCOPHENOLATE MOFETIL [Suspect]
     Dosage: 2000 MG ADMINISTERED IN TWO DAILY DOSES
     Route: 042
  4. MYCOPHENOLATE MOFETIL [Suspect]
     Dosage: DOSE AND FREQUENCY NOT SPECIFIED
     Route: 048

REACTIONS (2)
  - EROSIVE OESOPHAGITIS [None]
  - GASTRITIS EROSIVE [None]
